FAERS Safety Report 4726093-X (Version None)
Quarter: 2005Q3

REPORT INFORMATION
  Report Type: 
  Country: None (occurrence: None)
  Receive Date: 20050726
  Receipt Date: 20050726
  Transmission Date: 20060218
  Serious: Yes (Other)
  Sender: FDA-Public Use
  Company Number: None

PATIENT
  Sex: Female

DRUGS (1)
  1. NICORETTE [Suspect]
     Indication: SMOKING CESSATION THERAPY
     Dosage: 2MG 5/DAY ORAL
     Route: 048
     Dates: start: 20040930, end: 20041013

REACTIONS (2)
  - PRECIPITATE LABOUR [None]
  - PREMATURE SEPARATION OF PLACENTA [None]
